FAERS Safety Report 7386489-7 (Version None)
Quarter: 2011Q1

REPORT INFORMATION
  Report Type: 
  Country: None (occurrence: None)
  Receive Date: 20110331
  Receipt Date: 20110304
  Transmission Date: 20110831
  Serious: No
  Sender: FDA-Public Use
  Company Number: US-B.I. PHARMACEUTICALS,INC./RIDGEFIELD-2011-BP-07264BP

PATIENT
  Sex: Female

DRUGS (7)
  1. PULMICORT [Concomitant]
     Indication: PROPHYLAXIS
  2. INDERAL [Concomitant]
     Indication: TACHYCARDIA
     Dosage: 60 MG
  3. ATROVENT HFA [Suspect]
     Indication: VOCAL CORD DISORDER
     Route: 055
     Dates: start: 20080101, end: 20080101
  4. ATROVENT HFA [Suspect]
     Indication: ASTHMA
     Route: 055
     Dates: start: 20110303
  5. SYNTHROID [Concomitant]
     Indication: THYROID DISORDER
     Dosage: 0.1 MCG
  6. NEXIUM [Concomitant]
     Indication: GASTROOESOPHAGEAL REFLUX DISEASE
  7. PULMICORT [Concomitant]
     Indication: DYSPNOEA
     Dosage: 4 PUF
     Route: 055
     Dates: start: 20060101

REACTIONS (2)
  - THROAT TIGHTNESS [None]
  - DYSPHONIA [None]
